FAERS Safety Report 7942010-3 (Version None)
Quarter: 2011Q4

REPORT INFORMATION
  Report Type: 
  Country: None (occurrence: None)
  Receive Date: 20111114
  Receipt Date: 20110526
  Transmission Date: 20120403
  Serious: Yes (Hospitalization)
  Sender: FDA-Public Use
  Company Number: 2011027640

PATIENT
  Sex: Female

DRUGS (1)
  1. HIZENTRA [Suspect]
     Dosage: (SUBCUTANEOUS)
     Route: 058
     Dates: start: 20101201

REACTIONS (5)
  - SKIN REACTION [None]
  - EMBOLISM [None]
  - PYREXIA [None]
  - NAUSEA [None]
  - VOMITING [None]
